FAERS Safety Report 4530154-8 (Version None)
Quarter: 2004Q4

REPORT INFORMATION
  Report Type: 
  Country: None (occurrence: None)
  Receive Date: 20041215
  Receipt Date: 20041130
  Transmission Date: 20050328
  Serious: Yes (Hospitalization)
  Sender: FDA-Public Use
  Company Number: 2004IM000641

PATIENT
  Age: 66 Year
  Sex: Female
  Weight: 73.0291 kg

DRUGS (14)
  1. INTERFERON GAMMA-1B [Suspect]
     Indication: OVARIAN CANCER
     Dosage: 100 UG; TIW; SUBCUTANEOUS
     Route: 058
     Dates: start: 20040318, end: 20040429
  2. CARBOPLATIN [Suspect]
     Indication: OVARIAN CANCER
     Dosage: 450 MG; Q3W; INTRAVENOUS
     Route: 042
     Dates: start: 20040318, end: 20040429
  3. PACLITAXEL [Suspect]
     Indication: OVARIAN CANCER
     Dosage: 319; MG; Q3W; INTRAVENOUS
     Route: 042
     Dates: start: 20040318, end: 20040429
  4. NORVASC [Concomitant]
  5. SYNTHROID [Concomitant]
  6. COMPAZINE [Concomitant]
  7. ZOFRAN [Concomitant]
  8. MOTRIN [Concomitant]
  9. IMODIUM [Concomitant]
  10. LOMOTIL [Concomitant]
  11. PROTONIX [Concomitant]
  12. BUSPAR [Concomitant]
  13. COLESTID [Concomitant]
  14. EFFEXOR [Concomitant]

REACTIONS (11)
  - ANASTOMOTIC STENOSIS [None]
  - CATHETER RELATED COMPLICATION [None]
  - COLONIC STENOSIS [None]
  - DEVICE MALFUNCTION [None]
  - FLANK PAIN [None]
  - GASTRITIS [None]
  - HIATUS HERNIA [None]
  - ILEUS [None]
  - INTESTINAL ANASTOMOSIS [None]
  - NEUTROPENIC COLITIS [None]
  - SMALL INTESTINAL OBSTRUCTION [None]
